FAERS Safety Report 9802860 (Version 1)
Quarter: 2014Q1

REPORT INFORMATION
  Report Type: Spontaneous
  Country: US (occurrence: None)
  Receive Date: 20140106
  Receipt Date: 20140106
  Transmission Date: 20141002
  Serious: Yes (Life-Threatening, Disabling)
  Sender: FDA-Public Use
  Company Number: None

PATIENT
  Sex: 0

DRUGS (1)
  1. ATRIPLA [Suspect]

REACTIONS (3)
  - Feeling abnormal [None]
  - Drug dose omission [None]
  - Fear of death [None]
